FAERS Safety Report 15736245 (Version 2)
Quarter: 2019Q1

REPORT INFORMATION
  Report Type: Report from Study
  Country: US (occurrence: US)
  Receive Date: 20181218
  Receipt Date: 20190102
  Transmission Date: 20190417
  Serious: Yes (Hospitalization)
  Sender: FDA-Public Use
  Company Number: US-CELGENEUS-USA-20181204116

PATIENT
  Age: 63 Year
  Sex: Female
  Weight: 80.09 kg

DRUGS (7)
  1. RASBURICASE [Concomitant]
     Active Substance: RASBURICASE
     Indication: PRODUCT USED FOR UNKNOWN INDICATION
     Route: 065
  2. PENTOSTATIN. [Concomitant]
     Active Substance: PENTOSTATIN
     Indication: PRODUCT USED FOR UNKNOWN INDICATION
     Dosage: 4 MILLIGRAM/SQ. METER
     Route: 065
     Dates: start: 20181206
  3. BUSULFAN. [Concomitant]
     Active Substance: BUSULFAN
     Indication: PRODUCT USED FOR UNKNOWN INDICATION
     Route: 065
     Dates: start: 20180919, end: 20180921
  4. ISTODAX [Suspect]
     Active Substance: ROMIDEPSIN
     Indication: BONE MARROW CONDITIONING REGIMEN
     Dosage: 4.5 MILLIGRAM
     Route: 041
     Dates: start: 20180919, end: 20180921
  5. PENTOSTATIN. [Concomitant]
     Active Substance: PENTOSTATIN
     Dosage: 4 MILLIGRAM/SQ. METER
     Route: 065
  6. FLUDARABINE [Concomitant]
     Active Substance: FLUDARABINE PHOSPHATE
     Indication: PRODUCT USED FOR UNKNOWN INDICATION
     Route: 065
     Dates: start: 20180919, end: 20180921
  7. TACROLIMUS. [Concomitant]
     Active Substance: TACROLIMUS
     Indication: PRODUCT USED FOR UNKNOWN INDICATION
     Route: 065
     Dates: start: 20180922

REACTIONS (5)
  - Blood uric acid increased [Recovered/Resolved]
  - Diarrhoea [Recovered/Resolved]
  - Blood creatinine increased [Recovered/Resolved]
  - Blood potassium increased [Recovered/Resolved]
  - Decreased appetite [Recovered/Resolved]

NARRATIVE: CASE EVENT DATE: 20181208
